FAERS Safety Report 25986428 (Version 1)
Quarter: 2025Q4

REPORT INFORMATION
  Report Type: Spontaneous
  Country: CN (occurrence: CN)
  Receive Date: 20251031
  Receipt Date: 20251031
  Transmission Date: 20260117
  Serious: Yes (Hospitalization, Other)
  Sender: ELI LILLY AND COMPANY
  Company Number: CN-Merck Healthcare KGaA-2025054816

PATIENT
  Age: 68 Year
  Sex: Male
  Weight: 55 kg

DRUGS (2)
  1. ERBITUX [Suspect]
     Active Substance: CETUXIMAB
     Indication: Colon cancer
     Dosage: 0.7 G, UNKNOWN
     Route: 041
     Dates: start: 20251008, end: 20251008
  2. RALTITREXED [Suspect]
     Active Substance: RALTITREXED
     Indication: Colon cancer
     Dosage: 3 MG, DAILY
     Route: 041
     Dates: start: 20251009, end: 20251009

REACTIONS (1)
  - Myelosuppression [Recovering/Resolving]

NARRATIVE: CASE EVENT DATE: 20251014
